FAERS Safety Report 10263924 (Version 2)
Quarter: 2015Q1

REPORT INFORMATION
  Report Type: Spontaneous
  Country: US (occurrence: US)
  Receive Date: 20140627
  Receipt Date: 20140627
  Transmission Date: 20150720
  Serious: Yes (Hospitalization, Disabling, Other)
  Sender: FDA-Public Use
  Company Number: US-AMGEN INC.-USASP2014047712

PATIENT
  Age: 54 Year
  Sex: Male
  Weight: 98.41 kg

DRUGS (1)
  1. ENBREL [Suspect]
     Active Substance: ETANERCEPT
     Indication: PSORIATIC ARTHROPATHY
     Dosage: 50 MG, 2 TIMES/WK 3-4 DAYS APART
     Route: 058
     Dates: start: 20050104

REACTIONS (7)
  - Coronary artery occlusion [Unknown]
  - Squamous cell carcinoma [Unknown]
  - Herpes zoster [Unknown]
  - Staphylococcal infection [Unknown]
  - Oropharyngeal pain [Unknown]
  - Disability [Unknown]
  - Sinusitis [Unknown]

NARRATIVE: CASE EVENT DATE: 2012
